FAERS Safety Report 10406210 (Version 1)
Quarter: 2014Q3

REPORT INFORMATION
  Report Type: Spontaneous
  Country: RU (occurrence: RU)
  Receive Date: 20140825
  Receipt Date: 20140825
  Transmission Date: 20150326
  Serious: Yes (Other)
  Sender: FDA-Public Use
  Company Number: RU-ABBVIE-14P-251-1275788-00

PATIENT
  Age: 30 Year
  Sex: Male

DRUGS (1)
  1. DEPAKENE [Suspect]
     Active Substance: VALPROIC ACID
     Indication: EPILEPSY
     Dosage: PRLONGED RELEASE GRANULES

REACTIONS (3)
  - Road traffic accident [Unknown]
  - Convulsion [Unknown]
  - Head injury [Unknown]

NARRATIVE: CASE EVENT DATE: 2010
